FAERS Safety Report 24402853 (Version 1)
Quarter: 2024Q4

REPORT INFORMATION
  Report Type: Spontaneous
  Country: NL (occurrence: NL)
  Receive Date: 20241007
  Receipt Date: 20241007
  Transmission Date: 20250114
  Serious: Yes (Hospitalization)
  Sender: CHEPLAPHARM
  Company Number: None

PATIENT
  Age: 33 Year
  Sex: Male
  Weight: 115 kg

DRUGS (2)
  1. OLANZAPINE PAMOATE [Suspect]
     Active Substance: OLANZAPINE PAMOATE
     Indication: Psychotic disorder
     Dosage: ONCE PER 2 WEEKS/300MG +SOLV 3ML
     Dates: start: 20231227, end: 20240924
  2. OLANZAPINE PAMOATE [Suspect]
     Active Substance: OLANZAPINE PAMOATE
     Indication: Psychotic disorder

REACTIONS (2)
  - Toxicity to various agents [Recovered/Resolved]
  - Post procedural complication [Recovered/Resolved]
